FAERS Safety Report 10378760 (Version 1)
Quarter: 2014Q3

REPORT INFORMATION
  Report Type: Spontaneous
  Country: US (occurrence: None)
  Receive Date: 20140808
  Receipt Date: 20140808
  Transmission Date: 20150326
  Serious: Yes (Death)
  Sender: FDA-Public Use
  Company Number: VAL_03274_2014

PATIENT
  Age: 10 Month
  Sex: Female

DRUGS (10)
  1. NUTROPIN AQ [Suspect]
     Active Substance: SOMATROPIN
     Dosage: 0.5 MG, QD) , (0.5 MG QD SUBCITANEOUS) (UNKNOWN UNTIL NOT CONTINUING), (UNKNOWN)
     Route: 058
  2. METOCLOPRAMIDE. [Concomitant]
     Active Substance: METOCLOPRAMIDE
  3. FERROUS SULFATE [Concomitant]
     Active Substance: FERROUS SULFATE\FERROUS SULFATE, DRIED
  4. LEVODROPA [Concomitant]
  5. AMLODIPINE [Concomitant]
     Active Substance: AMLODIPINE BESYLATE
  6. RANITIDINE [Concomitant]
     Active Substance: RANITIDINE\RANITIDINE HYDROCHLORIDE
  7. BACLOFEN. [Concomitant]
     Active Substance: BACLOFEN
  8. EPOGEN [Concomitant]
     Active Substance: ERYTHROPOIETIN
  9. CARBIDOPA. [Concomitant]
     Active Substance: CARBIDOPA
  10. CALCITRIOL. [Suspect]
     Active Substance: CALCITRIOL
     Indication: PRODUCT USED FOR UNKNOWN INDICATION
     Dosage: 0.1 MG, (BY G-TUBE) (UNKNOWN THERAPY DATES)

REACTIONS (2)
  - Conjunctivitis [None]
  - Cerumen impaction [None]

NARRATIVE: CASE EVENT DATE: 201206
